FAERS Safety Report 7340899-2 (Version None)
Quarter: 2011Q1

REPORT INFORMATION
  Report Type: 
  Country: None (occurrence: None)
  Receive Date: 20110309
  Receipt Date: 20110307
  Transmission Date: 20110831
  Serious: No
  Sender: FDA-Public Use
  Company Number: US-ABBOTT-11P-163-0709910-00

PATIENT
  Sex: Female

DRUGS (1)
  1. LUPRON DEPOT [Suspect]
     Indication: ENDOMETRIOSIS
     Dates: start: 20100817, end: 20101129

REACTIONS (4)
  - INJECTION SITE SWELLING [None]
  - INJECTION SITE PAIN [None]
  - HYPERSENSITIVITY [None]
  - INJECTION SITE WARMTH [None]
